FAERS Safety Report 9537350 (Version 2)
Quarter: 2013Q4

REPORT INFORMATION
  Report Type: Spontaneous
  Country: US (occurrence: US)
  Receive Date: 20130919
  Receipt Date: 20131114
  Transmission Date: 20140711
  Serious: Yes (Other)
  Sender: FDA-Public Use
  Company Number: US-PFIZER INC-2013269758

PATIENT
  Age: 72 Year
  Sex: Female
  Weight: 68.03 kg

DRUGS (39)
  1. LIPITOR [Suspect]
     Indication: BLOOD CHOLESTEROL INCREASED
     Dosage: 1 DF, EVERY NIGHT AS DIRECTED
     Route: 048
  2. NEURONTIN [Suspect]
     Dosage: 1 DF, 3X/DAY AS DIRECTED
     Route: 048
  3. GABAPENTIN [Concomitant]
     Dosage: 1 DF, 3X/DAY, AS DIRECTED
     Route: 048
     Dates: start: 20130429
  4. GABAPENTIN [Concomitant]
     Dosage: 1 DF, 3X/DAY
     Route: 048
     Dates: start: 20130829
  5. GABAPENTIN [Concomitant]
     Dosage: 1 DF, 3X/DAY
     Route: 048
     Dates: start: 20130916
  6. GABAPENTIN [Concomitant]
     Dosage: UNK
     Route: 050
     Dates: start: 20131007
  7. CIPROFLOXACIN [Concomitant]
     Dosage: 1 DF, EVERY TWELVE HOURS WITH MEALS
     Route: 048
     Dates: start: 20130502
  8. ADVAIR DISKUS [Concomitant]
     Dosage: 1 DF, 2X/DAY
     Route: 055
     Dates: start: 20130318
  9. NEXIUM [Concomitant]
     Dosage: 1 DF, 1X/DAY AS DIRECTED
     Route: 048
     Dates: start: 20130329
  10. LISINOPRIL [Concomitant]
     Dosage: 1 DF, 1X/DAY AS DIT=RECTED
     Route: 048
     Dates: start: 20130329
  11. CILOSTAZOL [Concomitant]
     Dosage: 1 DF, 2X/DAY AS DIRECTED
     Route: 048
     Dates: start: 20130329
  12. CILOSTAZOL [Concomitant]
     Dosage: 1 DF, 4X/DAY
     Route: 050
  13. CILOSTAZOL [Concomitant]
     Dosage: UNK
     Dates: start: 20130814
  14. ALBUTEROL SULFATE [Concomitant]
     Dosage: 2 DF, USING INHALER EVERY 4 HOURS AS DIRECTED
     Route: 055
  15. TOBRADEX [Concomitant]
     Dosage: 1 DF, 4X/DAY
     Route: 047
     Dates: start: 20130329
  16. SPIRIVA [Concomitant]
     Dosage: 1 DF, 1X/DAY AS DIRECTED
     Route: 055
     Dates: start: 20130131
  17. REGLAN [Concomitant]
     Dosage: 1 DF, AS DIRECTED
     Route: 048
  18. MACROBID [Concomitant]
     Dosage: 1 DF, AS DIRECTED
     Route: 048
  19. HUMALOG [Concomitant]
     Dosage: UNK
     Dates: start: 20130329
  20. HUMALOG [Concomitant]
     Dosage: INJECT 10 4X/DAY WITH MEALS
     Route: 058
     Dates: start: 20130520
  21. LANTUS [Concomitant]
     Dosage: UNK
     Dates: start: 20130318
  22. LANTUS [Concomitant]
     Dosage: INJECT 90 ONCE DAILY
     Route: 058
     Dates: start: 20130520
  23. DALIRESP [Concomitant]
     Dosage: 1 DF, 1X/DAY AS DIRECTED
     Route: 048
     Dates: start: 20130329
  24. AMBIEN [Concomitant]
     Dosage: 1/2 AT BED TIME AS NEEDED
     Route: 048
  25. AMBIEN [Concomitant]
     Dosage: 1/2 TO 1 AT BED TIME AS NEEDED
     Route: 048
     Dates: start: 20130520
  26. NITROFURANTOIN MONOHYDRATE [Concomitant]
     Dosage: 1 DF, 1X/DAY
     Route: 048
     Dates: start: 20130329
  27. ZOLPIDEM [Concomitant]
     Dosage: UNK
     Dates: start: 20130329
  28. HYDROCODONE - ACETAMINOPHEN [Concomitant]
     Dosage: UNK
     Dates: start: 20130404
  29. METOCLOPRAMIDE HYDROCHLORIDE [Concomitant]
     Dosage: UNK
     Dates: start: 20130329
  30. METOCLOPRAMIDE HYDROCHLORIDE [Concomitant]
     Dosage: UNK
     Route: 050
     Dates: start: 20131028
  31. ATORVASTATIN [Concomitant]
     Dosage: UNK
     Dates: start: 20121219
  32. CITALOPRAM [Concomitant]
     Dosage: 1 DF, 1X/DAY
     Route: 048
     Dates: start: 20130408
  33. ANTIVERT [Concomitant]
     Dosage: 1 DF, 1X/DAY, EVERY SIX TO EIGHT HOURS AS NEEDED
     Route: 048
     Dates: start: 20130715
  34. IBUPROFEN [Concomitant]
     Indication: PAIN
     Dosage: 1 DF, TWICE A DAY AS NEEDED
     Route: 048
     Dates: start: 20130829
  35. BACTRIM DS [Concomitant]
     Dosage: 1 DF, 2X/DAY AS DIRECTED
     Route: 048
     Dates: start: 20130829
  36. BACTRIM DS [Concomitant]
     Dosage: UNK
     Route: 050
     Dates: start: 20131007
  37. ALPRAZOLAM [Concomitant]
     Dosage: 1 DF, 1X/DAY
     Dates: start: 20130404
  38. ALPRAZOLAM [Concomitant]
     Dosage: 1/2 ONCE A DAY AS DIRECTED
     Dates: start: 20130520
  39. PROAIR HFA [Concomitant]
     Dosage: UNK
     Dates: start: 20130131

REACTIONS (1)
  - Hearing impaired [Unknown]
